FAERS Safety Report 22400719 (Version 1)
Quarter: 2023Q2

REPORT INFORMATION
  Report Type: Spontaneous
  Country: RU (occurrence: RU)
  Receive Date: 20230602
  Receipt Date: 20230602
  Transmission Date: 20230722
  Serious: Yes (Hospitalization, Congenital Anomaly, Other)
  Sender: FDA-Public Use
  Company Number: RU-GLAXOSMITHKLINE-RU2023GSK078304

PATIENT

DRUGS (1)
  1. VALACYCLOVIR [Suspect]
     Active Substance: VALACYCLOVIR HYDROCHLORIDE
     Indication: Cytomegalovirus infection
     Dosage: 4 G, BID
     Route: 064

REACTIONS (6)
  - Congenital cytomegalovirus infection [Unknown]
  - Pneumonia [Recovered/Resolved]
  - Vertical infection transmission [Unknown]
  - Cerebral cyst [Unknown]
  - Angiopathy [Unknown]
  - Foetal exposure during pregnancy [Unknown]
